FAERS Safety Report 10070762 (Version 1)
Quarter: 2014Q2

REPORT INFORMATION
  Report Type: Spontaneous
  Country: US (occurrence: US)
  Receive Date: 20140410
  Receipt Date: 20140410
  Transmission Date: 20141212
  Serious: No
  Sender: FDA-Public Use
  Company Number: US-009507513-1404USA003088

PATIENT
  Sex: Female

DRUGS (2)
  1. PEGINTRON [Suspect]
     Indication: HEPATITIS C
     Dosage: REDIPEN, 0.5CC ONCE A WEEK
     Route: 058
     Dates: start: 20140326
  2. RIBAPAK [Suspect]
     Dosage: 1000 MG, UNK

REACTIONS (1)
  - Injection site erythema [Unknown]
